FAERS Safety Report 13567052 (Version 2)
Quarter: 2017Q2

REPORT INFORMATION
  Report Type: Spontaneous
  Country: JP (occurrence: JP)
  Receive Date: 20170522
  Receipt Date: 20170621
  Transmission Date: 20170830
  Serious: Yes (Hospitalization, Other)
  Sender: FDA-Public Use
  Company Number: JP-TAKEDA-2017TUS011021

PATIENT
  Age: 63 Year
  Sex: Male

DRUGS (8)
  1. FEBURIC [Suspect]
     Active Substance: FEBUXOSTAT
     Indication: HYPERURICAEMIA
     Dosage: 10 MG, QD
     Route: 048
     Dates: start: 20151003, end: 20151027
  2. DEPAS [Concomitant]
     Active Substance: ETIZOLAM
     Dosage: 0.5 MG, QD
     Route: 048
  3. FEBURIC [Suspect]
     Active Substance: FEBUXOSTAT
     Dosage: 40 MG, QD
     Route: 048
     Dates: start: 20151207
  4. CELESTAMINE [Concomitant]
     Active Substance: BETAMETHASONE\DEXCHLORPHENIRAMINE MALEATE
     Indication: RHINITIS ALLERGIC
     Dosage: 2.5 MG, QD
     Route: 048
  5. DEPAS [Concomitant]
     Active Substance: ETIZOLAM
     Route: 048
  6. AZILVA [Concomitant]
     Active Substance: AZILSARTAN KAMEDOXOMIL
     Indication: HYPERTENSION
     Dosage: 20 MG, QD
     Route: 048
     Dates: start: 20151003, end: 20160620
  7. TALION                             /01587402/ [Concomitant]
     Active Substance: BEPOTASTINE
     Indication: RHINITIS ALLERGIC
     Dosage: 10 MG, BID
     Route: 048
  8. FEBURIC [Suspect]
     Active Substance: FEBUXOSTAT
     Dosage: 20 MG, QD
     Route: 048
     Dates: start: 20151028, end: 20151206

REACTIONS (1)
  - Interstitial lung disease [Unknown]

NARRATIVE: CASE EVENT DATE: 20170410
